FAERS Safety Report 5841949-2 (Version None)
Quarter: 2008Q3

REPORT INFORMATION
  Report Type: 
  Country: None (occurrence: None)
  Receive Date: 20080812
  Receipt Date: 20050825
  Transmission Date: 20090109
  Serious: Yes (Congenital Anomaly)
  Sender: FDA-Public Use
  Company Number: US-MERCK-0508USA03790B1

PATIENT
  Age: 0 Day
  Sex: Female

DRUGS (4)
  1. SINGULAIR [Suspect]
     Indication: ASTHMA
     Route: 064
     Dates: start: 19990101
  2. YASMIN [Concomitant]
     Route: 064
  3. ZYRTEC [Concomitant]
     Route: 064
  4. ALBUTEROL [Concomitant]
     Route: 064

REACTIONS (1)
  - LIMB REDUCTION DEFECT [None]
